FAERS Safety Report 10251151 (Version 1)
Quarter: 2014Q2

REPORT INFORMATION
  Report Type: Spontaneous
  Country: US (occurrence: US)
  Receive Date: 20140620
  Receipt Date: 20140620
  Transmission Date: 20141212
  Serious: No
  Sender: FDA-Public Use
  Company Number: US-ASTRAZENECA-2014SE45260

PATIENT
  Age: 65 Year
  Sex: Female
  Weight: 77.1 kg

DRUGS (1)
  1. NEXIUM 24 HR [Suspect]
     Route: 048
     Dates: start: 201406

REACTIONS (5)
  - Gastrooesophageal reflux disease [Unknown]
  - Disorientation [Unknown]
  - Headache [Unknown]
  - Dry mouth [Unknown]
  - Agitation [Unknown]
